FAERS Safety Report 4309319-6 (Version None)
Quarter: 2004Q1

REPORT INFORMATION
  Report Type: 
  Country: None (occurrence: None)
  Receive Date: 20040301
  Receipt Date: 20040218
  Transmission Date: 20041129
  Serious: Yes (Other)
  Sender: FDA-Public Use
  Company Number: US-JNJFOC-20040204379

PATIENT
  Age: 79 Year
  Sex: Female

DRUGS (1)
  1. DURAGESIC [Suspect]
     Indication: PAIN
     Dosage: 50 UG/HR, 1 IN 72 HOUR, TRANSDEMAL
     Route: 062
     Dates: start: 20030101

REACTIONS (4)
  - DYSPNOEA [None]
  - FALL [None]
  - FATIGUE [None]
  - SPINAL FRACTURE [None]
